FAERS Safety Report 6379466-6 (Version None)
Quarter: 2009Q3

REPORT INFORMATION
  Report Type: 
  Country: None (occurrence: None)
  Receive Date: 20090928
  Receipt Date: 20090923
  Transmission Date: 20100115
  Serious: Yes (Death, Hospitalization)
  Sender: FDA-Public Use
  Company Number: B0593879A

PATIENT
  Sex: Male

DRUGS (18)
  1. TOPOTECAN [Suspect]
     Indication: SMALL CELL LUNG CANCER EXTENSIVE STAGE
     Dosage: 3.32MG PER DAY
     Dates: start: 20090406
  2. INSULIN [Concomitant]
  3. AMLODIPINE [Concomitant]
  4. CANDESARTAN CILEXETIL [Concomitant]
  5. PANTOPRAZOLE SODIUM [Concomitant]
     Dosage: 40MG PER DAY
     Route: 048
     Dates: start: 20090813
  6. SIMVASTATIN [Concomitant]
     Dosage: 20MG PER DAY
     Route: 048
     Dates: start: 20090813
  7. NEUPOGEN [Concomitant]
     Indication: PROPHYLAXIS
     Route: 058
     Dates: start: 20090302
  8. METOCLOPRAMIDE [Concomitant]
     Indication: NAUSEA
     Route: 048
     Dates: start: 20090407
  9. RED BLOOD CELLS [Concomitant]
  10. DEXAMETHASONE 4MG TAB [Concomitant]
     Dosage: 36MG THREE TIMES PER DAY
     Route: 048
  11. KEVATRIL [Concomitant]
     Dosage: 1MG PER DAY
     Route: 042
     Dates: start: 20090406
  12. GRANISETRON HCL [Concomitant]
     Indication: INFECTION PROPHYLAXIS
     Route: 042
     Dates: start: 20090401
  13. TRIMETHOPRIM [Concomitant]
     Indication: PROPHYLAXIS
     Dosage: 960MG TWICE PER DAY
     Dates: start: 20090818
  14. AMPHOTERICIN B [Concomitant]
     Indication: INFECTION PROPHYLAXIS
     Dosage: 300MG THREE TIMES PER DAY
     Route: 048
     Dates: start: 20090818
  15. FOLSAN [Concomitant]
     Dosage: 5MG PER DAY
     Route: 048
     Dates: start: 20090820
  16. HUMAN INSULIN [Concomitant]
     Route: 058
     Dates: start: 20090820
  17. LENOGRASTIM [Concomitant]
     Route: 058
     Dates: start: 20090820
  18. PLATELETS [Concomitant]
     Route: 042
     Dates: start: 20090819

REACTIONS (7)
  - ANAEMIA [None]
  - CHEST PAIN [None]
  - CONVULSION [None]
  - HYPERKALAEMIA [None]
  - PNEUMOTHORAX [None]
  - PYREXIA [None]
  - SMALL CELL LUNG CANCER STAGE UNSPECIFIED [None]
